FAERS Safety Report 4697861-8 (Version None)
Quarter: 2005Q2

REPORT INFORMATION
  Report Type: 
  Country: None (occurrence: None)
  Receive Date: 20050119
  Receipt Date: 20050119
  Transmission Date: 20051028
  Serious: No
  Sender: FDA-Public Use
  Company Number: None

PATIENT
  Sex: Male
  Weight: 121.1104 kg

DRUGS (3)
  1. OXYCODONE HCL [Suspect]
     Indication: NAUSEA
     Dosage: ONE , TWICE DAILY
  2. OXYCODONE HCL [Suspect]
     Indication: RASH
     Dosage: ONE , TWICE DAILY
  3. OXYCODONE HCL [Suspect]
     Indication: VOMITING
     Dosage: ONE , TWICE DAILY

REACTIONS (2)
  - NAUSEA [None]
  - RASH [None]
